FAERS Safety Report 7550758-8 (Version None)
Quarter: 2011Q2

REPORT INFORMATION
  Report Type: 
  Country: None (occurrence: None)
  Receive Date: 20110609
  Receipt Date: 20110524
  Transmission Date: 20111010
  Serious: Yes (Hospitalization, Other)
  Sender: FDA-Public Use
  Company Number: 2011P1006287

PATIENT
  Age: 51 Year
  Sex: Female

DRUGS (4)
  1. NUDERM BLENDER [Suspect]
     Dosage: TOP
     Route: 061
  2. ELASTIDERM DECOLLETAGE SKIN LIGHTENING COMPLEX (4% HYDROQUINONE) [Suspect]
     Dosage: TOP
     Route: 061
  3. NUDERM CLEAR [Suspect]
     Dosage: TOP
     Route: 061
  4. NUDERM SUNFADER SPF 15 [Suspect]
     Dosage: TOP
     Route: 061

REACTIONS (5)
  - HYPERTENSION [None]
  - CHEST PAIN [None]
  - HEADACHE [None]
  - DIZZINESS [None]
  - HEMIPARESIS [None]
